FAERS Safety Report 25026578 (Version 1)
Quarter: 2025Q1

REPORT INFORMATION
  Report Type: Spontaneous
  Country: IT (occurrence: IT)
  Receive Date: 20250301
  Receipt Date: 20250301
  Transmission Date: 20250408
  Serious: Yes (Death, Other)
  Sender: STRIDES
  Company Number: IT-STRIDES ARCOLAB LIMITED-2025SP002589

PATIENT
  Age: 53 Year
  Sex: Female

DRUGS (6)
  1. ETOPOSIDE [Suspect]
     Active Substance: ETOPOSIDE
     Indication: Neuroendocrine carcinoma
     Route: 065
     Dates: start: 202305, end: 202310
  2. CARBOPLATIN [Suspect]
     Active Substance: CARBOPLATIN
     Indication: Neuroendocrine carcinoma
     Route: 065
     Dates: start: 202305, end: 202310
  3. ALECTINIB [Concomitant]
     Active Substance: ALECTINIB
     Indication: Anaplastic lymphoma kinase gene mutation
     Route: 065
     Dates: start: 202005
  4. ALECTINIB [Concomitant]
     Active Substance: ALECTINIB
     Indication: Lung adenocarcinoma
  5. LORLATINIB [Concomitant]
     Active Substance: LORLATINIB
     Indication: Anaplastic lymphoma kinase gene mutation
     Route: 065
     Dates: start: 202205
  6. LORLATINIB [Concomitant]
     Active Substance: LORLATINIB
     Indication: Lung adenocarcinoma

REACTIONS (2)
  - Drug ineffective for unapproved indication [Fatal]
  - Disease progression [Fatal]

NARRATIVE: CASE EVENT DATE: 20231101
